FAERS Safety Report 5010849-2 (Version None)
Quarter: 2006Q2

REPORT INFORMATION
  Report Type: 
  Country: None (occurrence: None)
  Receive Date: 20060525
  Receipt Date: 20060301
  Transmission Date: 20061013
  Serious: Yes (Other)
  Sender: FDA-Public Use
  Company Number: FR-GLAXOSMITHKLINE-B0413994A

PATIENT
  Age: 84 Year
  Sex: Female

DRUGS (2)
  1. AVANDIA [Suspect]
     Dosage: 8MG PER DAY
     Route: 048
     Dates: start: 20060201
  2. CORTICOID [Concomitant]
     Indication: ASTHMA

REACTIONS (4)
  - MACULAR DEGENERATION [None]
  - RETINAL OEDEMA [None]
  - RETINAL VASCULAR DISORDER [None]
  - VISUAL DISTURBANCE [None]
